FAERS Safety Report 7350232-8 (Version None)
Quarter: 2011Q1

REPORT INFORMATION
  Report Type: 
  Country: None (occurrence: None)
  Receive Date: 20110314
  Receipt Date: 20110303
  Transmission Date: 20110831
  Serious: Yes (Hospitalization, Other)
  Sender: FDA-Public Use
  Company Number: DE-ASTRAZENECA-2011SE09963

PATIENT
  Age: 85 Year
  Sex: Male

DRUGS (3)
  1. DILATREND [Concomitant]
     Route: 048
  2. ATACAND HCT [Suspect]
     Indication: HYPERTENSION
     Dosage: 8/12.5 MG IN THE MORNING
     Route: 048
     Dates: start: 20110212, end: 20110301
  3. ATACAND [Suspect]
     Indication: HYPERTENSION
     Route: 048
     Dates: start: 20110212

REACTIONS (5)
  - FATIGUE [None]
  - HEADACHE [None]
  - HYPERTENSION [None]
  - DRUG INEFFECTIVE [None]
  - MALAISE [None]
